FAERS Safety Report 9804407 (Version 1)
Quarter: 2014Q1

REPORT INFORMATION
  Report Type: Spontaneous
  Country: US (occurrence: US)
  Receive Date: 20140108
  Receipt Date: 20140108
  Transmission Date: 20141002
  Serious: Yes (Death)
  Sender: FDA-Public Use
  Company Number: US-UCBSA-107583

PATIENT
  Age: 35 Year
  Sex: Male

DRUGS (4)
  1. ALPRAZOLAM [Suspect]
     Dosage: ROUTE: INGESTION + PARENTERAL
  2. HEROIN [Suspect]
     Dosage: ROUTE: INGESTION + PARENTERAL
     Route: 048
  3. GABAPENTIN [Suspect]
     Dosage: ROUTE: INGESTION + PARENTERAL
  4. DIAZEPAM [Suspect]
     Dosage: ROUTE: INGESTION + PARENTERAL

REACTIONS (2)
  - Cardio-respiratory arrest [Fatal]
  - Toxicity to various agents [Fatal]
